FAERS Safety Report 25112002 (Version 1)
Quarter: 2025Q1

REPORT INFORMATION
  Report Type: Spontaneous
  Country: TR (occurrence: TR)
  Receive Date: 20250324
  Receipt Date: 20250324
  Transmission Date: 20250408
  Serious: Yes (Other)
  Sender: MYLAN
  Company Number: TR-MYLANLABS-2025M1024696

PATIENT
  Age: 40 Year
  Sex: Female

DRUGS (5)
  1. PREGABALIN [Suspect]
     Active Substance: PREGABALIN
     Indication: Pain
  2. ERLOTINIB [Concomitant]
     Active Substance: ERLOTINIB
     Indication: Olmsted syndrome
     Dosage: 50 MILLIGRAM, QD
  3. ERLOTINIB [Concomitant]
     Active Substance: ERLOTINIB
     Dosage: 100 MILLIGRAM, QD
  4. ERLOTINIB [Concomitant]
     Active Substance: ERLOTINIB
     Dosage: 150 MILLIGRAM, QD
  5. ERLOTINIB [Concomitant]
     Active Substance: ERLOTINIB
     Dosage: UNK UNK, BID, DOSE SPLIT TO TWICE DAILY

REACTIONS (1)
  - Drug ineffective [Unknown]
